FAERS Safety Report 5711993-4 (Version None)
Quarter: 2008Q2

REPORT INFORMATION
  Report Type: 
  Country: None (occurrence: None)
  Receive Date: 20080422
  Receipt Date: 20080410
  Transmission Date: 20081010
  Serious: Yes (Life-Threatening, Hospitalization)
  Sender: FDA-Public Use
  Company Number: GB-RANBAXY-2008RR-14396

PATIENT

DRUGS (6)
  1. IBUPROFEN TABLETS BP 200MG [Suspect]
     Indication: PAIN
     Dosage: 400 MG, TID
     Route: 048
     Dates: start: 20080228, end: 20080317
  2. ATENOLOL [Concomitant]
     Indication: HYPERTENSION
     Dosage: 50 MG, QD
     Route: 048
  3. BACLOFEN [Concomitant]
     Indication: MULTIPLE SCLEROSIS
     Dosage: 30 MG, QD
     Route: 048
  4. LANSOPRAZOLE [Concomitant]
     Indication: PROPHYLAXIS AGAINST GASTROINTESTINAL ULCER
     Dosage: 30 MG, QD
     Route: 048
  5. SERTRALINE [Concomitant]
     Indication: DEPRESSION
     Dosage: 50 MG, QD
     Route: 048
  6. SOLIFENACIN [Concomitant]
     Dosage: 10 MG, UNK
     Route: 048

REACTIONS (4)
  - DUODENITIS HAEMORRHAGIC [None]
  - HAEMATEMESIS [None]
  - HEART RATE INCREASED [None]
  - SYSTOLIC HYPERTENSION [None]
